FAERS Safety Report 10418853 (Version 1)
Quarter: 2014Q3

REPORT INFORMATION
  Report Type: Spontaneous
  Country: US (occurrence: US)
  Receive Date: 20140829
  Receipt Date: 20140829
  Transmission Date: 20150326
  Serious: No
  Sender: FDA-Public Use
  Company Number: US-ASTRAZENECA-2014SE30440

PATIENT
  Age: 64 Year
  Sex: Female

DRUGS (2)
  1. MERREM [Suspect]
     Active Substance: MEROPENEM
     Route: 042
     Dates: start: 20140426
  2. UNKNOWN [Concomitant]
     Active Substance: UNSPECIFIED INGREDIENT

REACTIONS (4)
  - Laboratory test abnormal [Unknown]
  - Dyspnoea [Unknown]
  - Feeling hot [Unknown]
  - Erythema [Unknown]
